FAERS Safety Report 4829506-8 (Version None)
Quarter: 2005Q4

REPORT INFORMATION
  Report Type: 
  Country: None (occurrence: None)
  Receive Date: 20051116
  Receipt Date: 20051108
  Transmission Date: 20060501
  Serious: Yes (Disabling)
  Sender: FDA-Public Use
  Company Number: CA-BRISTOL-MYERS SQUIBB COMPANY-13168703

PATIENT
  Age: 23 Year
  Sex: Male

DRUGS (1)
  1. COUMADIN [Suspect]
     Dosage: DAYS 1-3 7.5 MILLIGRAMS, DAY 4 2.5 MILLIGRAMS

REACTIONS (3)
  - DRUG INTERACTION [None]
  - PARALYSIS [None]
  - POST PROCEDURAL HAEMORRHAGE [None]
